FAERS Safety Report 10929527 (Version 1)
Quarter: 2015Q1

REPORT INFORMATION
  Report Type: Report from Study
  Country: US (occurrence: US)
  Receive Date: 20150319
  Receipt Date: 20150319
  Transmission Date: 20150721
  Serious: Yes (Death, Other)
  Sender: FDA-Public Use
  Company Number: US-ROCHE-1552520

PATIENT

DRUGS (3)
  1. PACLITAX NAB [Suspect]
     Active Substance: PACLITAXEL
     Indication: PANCREATIC CARCINOMA METASTATIC
     Route: 065
  2. VISMODEGIB [Suspect]
     Active Substance: VISMODEGIB
     Indication: PANCREATIC CARCINOMA METASTATIC
     Route: 065
  3. GEMCITABINE [Suspect]
     Active Substance: GEMCITABINE\GEMCITABINE HYDROCHLORIDE
     Indication: PANCREATIC CARCINOMA METASTATIC
     Route: 065

REACTIONS (2)
  - Dehydration [Recovered/Resolved with Sequelae]
  - Death [Fatal]

NARRATIVE: CASE EVENT DATE: 20110420
